FAERS Safety Report 10337338 (Version 3)
Quarter: 2014Q4

REPORT INFORMATION
  Report Type: Spontaneous
  Country: US (occurrence: US)
  Receive Date: 20140723
  Receipt Date: 20141103
  Transmission Date: 20150528
  Serious: Yes (Hospitalization, Disabling, Other)
  Sender: FDA-Public Use
  Company Number: US-009507513-1407USA008658

PATIENT
  Sex: Female
  Weight: 58.96 kg

DRUGS (8)
  1. FOSAMAX [Suspect]
     Active Substance: ALENDRONATE SODIUM
     Indication: OSTEOPOROSIS
     Dosage: 10 MG, QD
     Route: 048
     Dates: start: 1998
  2. VITAMINS (UNSPECIFIED) [Concomitant]
     Active Substance: VITAMINS
     Dosage: UNK DF, QD
     Route: 048
     Dates: start: 1990
  3. PYRIDOXINE [Concomitant]
     Active Substance: PYRIDOXINE
     Dosage: 200 MG, QD
     Dates: start: 1990
  4. CYANOCOBALAMIN. [Concomitant]
     Active Substance: CYANOCOBALAMIN
     Dosage: 100 MICROGRAM, QD
     Dates: start: 1990
  5. CITRACAL [Concomitant]
     Active Substance: CALCIUM CITRATE
     Dosage: UNK DF, BID
     Dates: start: 1990
  6. COSAMIN [Concomitant]
     Dosage: 2 DF, QD
     Dates: start: 1990
  7. FOSAMAX [Suspect]
     Active Substance: ALENDRONATE SODIUM
     Dosage: 70 MG, QW
     Route: 048
     Dates: start: 200110, end: 200710
  8. XANTHOPHYLL [Concomitant]
     Dosage: 20 MG, QD
     Dates: start: 1990

REACTIONS (29)
  - Rib fracture [Unknown]
  - Fibromyalgia [Unknown]
  - Fall [Unknown]
  - Haemorrhagic anaemia [Unknown]
  - Urinary tract infection [Unknown]
  - Rib fracture [Unknown]
  - Transient ischaemic attack [Unknown]
  - Hypertension [Unknown]
  - Osteoarthritis [Unknown]
  - Intramedullary rod insertion [Unknown]
  - Anxiety [Unknown]
  - Psychiatric symptom [Unknown]
  - Arthritis [Unknown]
  - Cataract [Unknown]
  - Appendicectomy [Unknown]
  - Laceration [Recovering/Resolving]
  - Drug intolerance [Unknown]
  - Menopausal symptoms [Recovered/Resolved]
  - Depression [Unknown]
  - Fall [Unknown]
  - Dyspepsia [Unknown]
  - Femur fracture [Unknown]
  - Back pain [Not Recovered/Not Resolved]
  - Eye operation [Unknown]
  - Polymyalgia rheumatica [Unknown]
  - Intervertebral disc disorder [Unknown]
  - Retinal operation [Unknown]
  - Drug ineffective [Unknown]
  - Meniscus injury [Unknown]

NARRATIVE: CASE EVENT DATE: 1999
